FAERS Safety Report 14021706 (Version 1)
Quarter: 2017Q3

REPORT INFORMATION
  Report Type: Report from Study
  Country: US (occurrence: US)
  Receive Date: 20170928
  Receipt Date: 20170928
  Transmission Date: 20171128
  Serious: No
  Sender: FDA-Public Use
  Company Number: US-CLOVIS ONCOLOGY-CLO-2017-000971

PATIENT
  Sex: Female

DRUGS (1)
  1. RUBRACA [Suspect]
     Active Substance: RUCAPARIB CAMSYLATE
     Indication: OVARIAN CANCER
     Dosage: 600 MG, BID
     Route: 048

REACTIONS (8)
  - Cystitis [Unknown]
  - Restless legs syndrome [Unknown]
  - Peripheral swelling [Unknown]
  - Fatigue [Unknown]
  - Skin disorder [Unknown]
  - Libido decreased [Unknown]
  - Nausea [Unknown]
  - Neuropathy peripheral [Unknown]
